FAERS Safety Report 5611393-1 (Version None)
Quarter: 2008Q1

REPORT INFORMATION
  Report Type: 
  Country: None (occurrence: None)
  Receive Date: 20080201
  Receipt Date: 20080121
  Transmission Date: 20080703
  Serious: Yes (Death, Other)
  Sender: FDA-Public Use
  Company Number: JP-PFIZER INC-2007108569

PATIENT
  Sex: Female
  Weight: 40 kg

DRUGS (4)
  1. VFEND [Suspect]
     Indication: CANDIDIASIS
     Route: 042
     Dates: start: 20071220, end: 20071224
  2. BIAPENEM [Suspect]
     Indication: SEPSIS
     Route: 042
     Dates: start: 20071212, end: 20071225
  3. FOY [Concomitant]
     Route: 042
     Dates: start: 20071218, end: 20071221
  4. NITROGLYCERIN [Concomitant]
     Route: 042
     Dates: start: 20071221, end: 20071223

REACTIONS (5)
  - BLOOD SODIUM DECREASED [None]
  - HYPOGLYCAEMIA [None]
  - RENAL FAILURE [None]
  - RESPIRATORY FAILURE [None]
  - SEPSIS [None]
